FAERS Safety Report 16802957 (Version 1)
Quarter: 2019Q3

REPORT INFORMATION
  Report Type: Spontaneous
  Country: DE (occurrence: DE)
  Receive Date: 20190913
  Receipt Date: 20190913
  Transmission Date: 20191005
  Serious: Yes (Other)
  Sender: FDA-Public Use
  Company Number: DE-SUN PHARMACEUTICAL INDUSTRIES LTD-2019RR-219791

PATIENT
  Sex: Male

DRUGS (1)
  1. TAMSULOSIN BASICS 0,4 MG HARTKAPSEL, RETARDIERT [Suspect]
     Active Substance: TAMSULOSIN
     Indication: PRODUCT USED FOR UNKNOWN INDICATION
     Dosage: INTAKE IN THE MORNING, ALLERGIC REACTION: AT EVENING/NIGHT
     Route: 048

REACTIONS (2)
  - Product substitution issue [Unknown]
  - Hypersensitivity [Recovering/Resolving]
